FAERS Safety Report 15391587 (Version 1)
Quarter: 2018Q3

REPORT INFORMATION
  Report Type: Report from Study
  Country: DE (occurrence: DE)
  Receive Date: 20180917
  Receipt Date: 20180917
  Transmission Date: 20181010
  Serious: Yes (Hospitalization)
  Sender: FDA-Public Use
  Company Number: PHHY2018DE097022

PATIENT
  Sex: Female
  Weight: 91 kg

DRUGS (7)
  1. KISQALI [Suspect]
     Active Substance: RIBOCICLIB
     Dosage: 600 MG, (21 DAYS)
     Route: 048
     Dates: start: 20180321, end: 20180410
  2. KISQALI [Suspect]
     Active Substance: RIBOCICLIB
     Dosage: 600 MG, (21 DAYS)
     Route: 048
     Dates: start: 20180613, end: 20180703
  3. LETROZOLE. [Suspect]
     Active Substance: LETROZOLE
     Indication: BREAST CANCER METASTATIC
     Dosage: 2.5 MG, QD
     Route: 048
     Dates: start: 20180221
  4. KISQALI [Suspect]
     Active Substance: RIBOCICLIB
     Dosage: 600 MG, (21 DAYS)
     Route: 048
     Dates: start: 20180418, end: 20180508
  5. KISQALI [Suspect]
     Active Substance: RIBOCICLIB
     Dosage: 600 MG, (21 DAYS)
     Route: 048
     Dates: start: 20180711
  6. KISQALI [Suspect]
     Active Substance: RIBOCICLIB
     Indication: BREAST CANCER METASTATIC
     Dosage: 600 MG, (21 DAYS)
     Route: 048
     Dates: start: 20180221, end: 20180313
  7. KISQALI [Suspect]
     Active Substance: RIBOCICLIB
     Dosage: 600 MG, (21 DAYS)
     Route: 048
     Dates: start: 20180516, end: 20180605

REACTIONS (1)
  - Dermal cyst [Unknown]

NARRATIVE: CASE EVENT DATE: 20180827
